FAERS Safety Report 25721334 (Version 1)
Quarter: 2025Q3

REPORT INFORMATION
  Report Type: Report from Study
  Country: EU (occurrence: EU)
  Receive Date: 20250825
  Receipt Date: 20250825
  Transmission Date: 20251020
  Serious: Yes (Life-Threatening, Hospitalization, Other)
  Sender: ETON PHARMACEUTICALS, INC
  Company Number: EU-IPSEN Group, Research and Development-2012-0605

PATIENT

DRUGS (3)
  1. INCRELEX [Suspect]
     Active Substance: MECASERMIN
     Indication: Primary insulin like growth factor-1 deficiency
     Dosage: 0.08 MILLIGRAM/KILOGRAM, BID
     Route: 058
     Dates: start: 20111130, end: 20120103
  2. INCRELEX [Suspect]
     Active Substance: MECASERMIN
     Dosage: 40 MICROGRAM/KILOGRAM, QD
     Route: 058
     Dates: start: 20100929, end: 20110314
  3. INCRELEX [Suspect]
     Active Substance: MECASERMIN
     Dosage: 0.06 MILLIGRAM/KILOGRAM, BID
     Route: 058
     Dates: start: 20110315, end: 20111129

REACTIONS (2)
  - Volvulus [Recovered/Resolved]
  - Volvulus of small bowel [Recovered/Resolved]

NARRATIVE: CASE EVENT DATE: 20120103
